FAERS Safety Report 5524500-6 (Version None)
Quarter: 2007Q4

REPORT INFORMATION
  Report Type: 
  Country: None (occurrence: None)
  Receive Date: 20071122
  Receipt Date: 20071114
  Transmission Date: 20080405
  Serious: Yes (Other)
  Sender: FDA-Public Use
  Company Number: PHEH2007US14877

PATIENT
  Age: 59 Year
  Sex: Female

DRUGS (10)
  1. ZOMETA [Suspect]
     Indication: BREAST CANCER METASTATIC
     Dosage: MONTHLY
     Dates: start: 20040401, end: 20070901
  2. ZOMETA [Suspect]
     Dosage: EVERY OTHER MONTH
     Dates: start: 20070901
  3. FEMARA [Concomitant]
  4. SYNTHROID [Concomitant]
  5. ZOLOFT [Concomitant]
  6. ZOCOR [Concomitant]
  7. CALCIUM WITH VITAMIN D [Concomitant]
  8. VITAMIN CAP [Concomitant]
  9. FIBERCON [Concomitant]
  10. ALEVE [Concomitant]

REACTIONS (2)
  - BONE DISORDER [None]
  - OSTEONECROSIS [None]
